FAERS Safety Report 8269359-1 (Version None)
Quarter: 2012Q2

REPORT INFORMATION
  Report Type: 
  Country: None (occurrence: None)
  Receive Date: 20120409
  Receipt Date: 20120330
  Transmission Date: 20120825
  Serious: Yes (Other)
  Sender: FDA-Public Use
  Company Number: US-ASTRAZENECA-2012SE13718

PATIENT
  Age: 72 Year
  Sex: Female

DRUGS (4)
  1. ASPIRIN [Concomitant]
  2. PROTONIX [Concomitant]
  3. LIPITOR [Concomitant]
  4. BRILINTA [Suspect]
     Route: 048

REACTIONS (1)
  - BRADYCARDIA [None]
